FAERS Safety Report 6595863-8 (Version None)
Quarter: 2010Q1

REPORT INFORMATION
  Report Type: 
  Country: None (occurrence: None)
  Receive Date: 20100223
  Receipt Date: 20100105
  Transmission Date: 20100710
  Serious: Yes (Other)
  Sender: FDA-Public Use
  Company Number: US-NAPPMUNDI-USA-2010-0041823

PATIENT
  Sex: Male
  Weight: 95.238 kg

DRUGS (2)
  1. OXYCONTIN [Suspect]
     Indication: ANALGESIC THERAPY
     Dosage: 10 MG, BID
     Dates: start: 19980702
  2. PRILOSEC [Concomitant]
     Indication: NAUSEA

REACTIONS (4)
  - DIZZINESS [None]
  - FEELING OF DESPAIR [None]
  - NAUSEA [None]
  - SUICIDAL IDEATION [None]
